FAERS Safety Report 9765987 (Version 1)
Quarter: 2013Q4

REPORT INFORMATION
  Report Type: Spontaneous
  Country: US (occurrence: US)
  Receive Date: 20131217
  Receipt Date: 20131217
  Transmission Date: 20140711
  Serious: No
  Sender: FDA-Public Use
  Company Number: US-GLAXOSMITHKLINE-A1014758A

PATIENT
  Sex: Male
  Weight: 43.2 kg

DRUGS (5)
  1. VOTRIENT [Suspect]
     Indication: PRODUCT USED FOR UNKNOWN INDICATION
     Dosage: 800MG PER DAY
     Route: 048
  2. TAMSULOSIN [Concomitant]
  3. ONDANSETRON [Concomitant]
  4. LOSARTAN [Concomitant]
  5. STOOL SOFTENER [Concomitant]

REACTIONS (4)
  - Constipation [Unknown]
  - Dry skin [Unknown]
  - Rash macular [Unknown]
  - Dry mouth [Unknown]
